FAERS Safety Report 6714918-8 (Version None)
Quarter: 2010Q2

REPORT INFORMATION
  Report Type: 
  Country: None (occurrence: None)
  Receive Date: 20100506
  Receipt Date: 20100506
  Transmission Date: 20101027
  Serious: Yes (Life-Threatening, Hospitalization)
  Sender: FDA-Public Use
  Company Number: None

PATIENT
  Sex: Male
  Weight: 25.4014 kg

DRUGS (2)
  1. CHILDREN'S ZYRTEC ALLERGY [Suspect]
     Indication: HYPERSENSITIVITY
     Dosage: PO    SEVERAL DAYS
     Route: 048
  2. CHILDREN'S MOTRIN [Suspect]
     Indication: FEELING COLD
     Dosage: PO SEVERAL DAYS
     Route: 048

REACTIONS (5)
  - BLOOD CULTURE POSITIVE [None]
  - DIARRHOEA [None]
  - PYREXIA [None]
  - SALMONELLOSIS [None]
  - WEIGHT DECREASED [None]
